FAERS Safety Report 22102151 (Version 1)
Quarter: 2023Q1

REPORT INFORMATION
  Report Type: Spontaneous
  Country: GB (occurrence: None)
  Receive Date: 20230316
  Receipt Date: 20230316
  Transmission Date: 20230418
  Serious: Yes (Other)
  Sender: FDA-Public Use
  Company Number: GB-MHRA-MED-202303021146203650-FZCQM

PATIENT
  Age: 76 Year
  Sex: Male
  Weight: 79 kg

DRUGS (8)
  1. RASAGILINE [Suspect]
     Active Substance: RASAGILINE
     Indication: Parkinson^s disease
     Dosage: 1 MG DAILY; ;
     Dates: start: 20120511, end: 20221104
  2. AMANTADINE [Concomitant]
     Active Substance: AMANTADINE
     Indication: Parkinson^s disease
     Dates: start: 2015
  3. CARBIDOPA\LEVODOPA [Concomitant]
     Active Substance: CARBIDOPA\LEVODOPA
     Indication: Parkinson^s disease
     Dates: start: 20120511
  4. CO-TRIMOXAZOLE. [Concomitant]
     Indication: Prostatitis
     Dates: start: 2001
  5. FINASTERIDE [Concomitant]
     Active Substance: FINASTERIDE
     Indication: Prostatism
     Dates: start: 20200401, end: 20220315
  6. FLUDROCORTISONE [Concomitant]
     Active Substance: FLUDROCORTISONE
     Indication: Orthostatic hypotension
     Dates: start: 20221104
  7. OPICAPONE [Concomitant]
     Active Substance: OPICAPONE
     Indication: Parkinson^s disease
     Dates: start: 2018
  8. TAMSULOSIN [Concomitant]
     Active Substance: TAMSULOSIN
     Indication: Prostatism
     Dates: start: 20160509

REACTIONS (1)
  - Angina pectoris [Recovered/Resolved]

NARRATIVE: CASE EVENT DATE: 20191101
